FAERS Safety Report 5208877-7 (Version None)
Quarter: 2007Q1

REPORT INFORMATION
  Report Type: 
  Country: None (occurrence: None)
  Receive Date: 20070116
  Receipt Date: 20070105
  Transmission Date: 20070707
  Serious: Yes (Hospitalization)
  Sender: FDA-Public Use
  Company Number: US-ELI_LILLY_AND_COMPANY-US200606000812

PATIENT
  Age: 45 Year
  Sex: Female
  Weight: 58.956 kg

DRUGS (3)
  1. ZYPREXA [Suspect]
     Dosage: 210 MG, UNK
     Dates: start: 20030701, end: 20060201
  2. RISPERIDONE [Concomitant]
     Dates: start: 20060201, end: 20060301
  3. ZIPRASIDONE HCL [Concomitant]
     Dates: start: 20060301

REACTIONS (4)
  - DIABETES MELLITUS INSULIN-DEPENDENT [None]
  - MENTAL DISORDER [None]
  - PRESCRIBED OVERDOSE [None]
  - WEIGHT INCREASED [None]
